FAERS Safety Report 6036712-6 (Version None)
Quarter: 2009Q1

REPORT INFORMATION
  Report Type: 
  Country: None (occurrence: None)
  Receive Date: 20090114
  Receipt Date: 20090108
  Transmission Date: 20090719
  Serious: Yes (Life-Threatening, Hospitalization)
  Sender: FDA-Public Use
  Company Number: IT-CELGENEUS-083-21880-09010281

PATIENT
  Sex: Female

DRUGS (6)
  1. REVLIMID [Suspect]
     Indication: MANTLE CELL LYMPHOMA
     Route: 048
     Dates: start: 20081216, end: 20081221
  2. REVLIMID [Suspect]
     Route: 048
     Dates: start: 20081221
  3. DEXAMETHASONE [Concomitant]
     Indication: MANTLE CELL LYMPHOMA
     Route: 048
     Dates: start: 20081216, end: 20081216
  4. BACTRIM [Concomitant]
     Indication: PROPHYLAXIS
     Route: 048
     Dates: start: 20081001
  5. TALAVIR [Concomitant]
     Indication: INFECTION
     Route: 048
     Dates: start: 20081001
  6. ALLOPURINOL [Concomitant]
     Indication: PROPHYLAXIS
     Route: 048
     Dates: start: 20081001

REACTIONS (1)
  - ANAEMIA [None]
